FAERS Safety Report 15586635 (Version 1)
Quarter: 2018Q4

REPORT INFORMATION
  Report Type: Spontaneous
  Country: US (occurrence: US)
  Receive Date: 20181105
  Receipt Date: 20181105
  Transmission Date: 20190205
  Serious: Yes (Life-Threatening, Hospitalization)
  Sender: FDA-Public Use
  Company Number: US-ACELLA PHARMACEUTICALS, LLC-2058412

PATIENT
  Age: 27 Year
  Sex: Male

DRUGS (2)
  1. BUPRENORPHINE AND NALOXONE [Suspect]
     Active Substance: BUPRENORPHINE\NALOXONE
  2. GABAPENTIN. [Suspect]
     Active Substance: GABAPENTIN
     Indication: EUPHORIC MOOD

REACTIONS (1)
  - Depressed level of consciousness [Recovered/Resolved]
